FAERS Safety Report 22089536 (Version 1)
Quarter: 2023Q1

REPORT INFORMATION
  Report Type: Spontaneous
  Country: US (occurrence: None)
  Receive Date: 20230311
  Receipt Date: 20230311
  Transmission Date: 20230417
  Serious: Yes (Other)
  Sender: FDA-Public Use
  Company Number: None

PATIENT
  Age: 32 Year
  Sex: Female
  Weight: 103.5 kg

DRUGS (12)
  1. TOPIRAMATE [Suspect]
     Active Substance: TOPIRAMATE
     Indication: Bipolar disorder
     Dosage: OTHER QUANTITY : 1 TABLET(S);?FREQUENCY : TWICE A DAY;?
     Route: 048
     Dates: start: 20230309, end: 20230310
  2. TOPIRAMATE [Suspect]
     Active Substance: TOPIRAMATE
     Indication: Weight decreased
  3. LAMACITAL [Concomitant]
  4. APLENZIN [Concomitant]
     Active Substance: BUPROPION HYDROBROMIDE
  5. NURTEC ODT [Concomitant]
     Active Substance: RIMEGEPANT SULFATE
  6. VITAMINS [Concomitant]
     Active Substance: VITAMINS
  7. MAGNESIUM [Concomitant]
     Active Substance: MAGNESIUM
  8. ZINC [Concomitant]
     Active Substance: ZINC
  9. VITAMIN C [Concomitant]
     Active Substance: ASCORBIC ACID
  10. VITAMIN D [Concomitant]
     Active Substance: VITAMIN D NOS
  11. COMBO PILL [Concomitant]
  12. CHONDROITIN SULFATE A\GLUCOSAMINE [Concomitant]
     Active Substance: CHONDROITIN SULFATE A\GLUCOSAMINE

REACTIONS (14)
  - Diarrhoea [None]
  - Nausea [None]
  - Abdominal pain upper [None]
  - Dizziness [None]
  - Impaired work ability [None]
  - Vomiting [None]
  - Hyperhidrosis [None]
  - Tremor [None]
  - Piloerection [None]
  - Chest discomfort [None]
  - Flank pain [None]
  - Head discomfort [None]
  - Heart rate abnormal [None]
  - Feeding disorder [None]

NARRATIVE: CASE EVENT DATE: 20230310
